FAERS Safety Report 23098426 (Version 3)
Quarter: 2024Q2

REPORT INFORMATION
  Report Type: Report from Study
  Country: JP (occurrence: JP)
  Receive Date: 20231023
  Receipt Date: 20240607
  Transmission Date: 20240716
  Serious: Yes (Hospitalization)
  Sender: FDA-Public Use
  Company Number: JP-SA-2023SA262277

PATIENT
  Age: 50 Year
  Sex: Female

DRUGS (1)
  1. LIBTAYO [Suspect]
     Active Substance: CEMIPLIMAB-RWLC
     Indication: Cervix carcinoma recurrent
     Dosage: 350 MG/DAY
     Route: 042

REACTIONS (3)
  - COVID-19 [Recovered/Resolved]
  - Pyrexia [Recovering/Resolving]
  - Inflammation [Recovering/Resolving]
